FAERS Safety Report 8553041-7 (Version None)
Quarter: 2012Q3

REPORT INFORMATION
  Report Type: 
  Country: None (occurrence: None)
  Receive Date: 20120731
  Receipt Date: 20120719
  Transmission Date: 20120928
  Serious: Yes (Other)
  Sender: FDA-Public Use
  Company Number: NL-SANOFI-AVENTIS-2012SA049942

PATIENT
  Sex: Male

DRUGS (3)
  1. FEXOFENADINE HCL [Suspect]
     Route: 048
     Dates: start: 20070101
  2. FEXOFENADINE HCL [Suspect]
     Route: 048
     Dates: start: 20070101
  3. FLUTICASONE FUROATE [Suspect]
     Route: 045
     Dates: start: 20110101, end: 20120701

REACTIONS (2)
  - BLINDNESS [None]
  - INTRACRANIAL PRESSURE INCREASED [None]
